FAERS Safety Report 9260287 (Version 3)
Quarter: 2014Q2

REPORT INFORMATION
  Report Type: Spontaneous
  Country: US (occurrence: US)
  Receive Date: 20130429
  Receipt Date: 20140624
  Transmission Date: 20141212
  Serious: No
  Sender: FDA-Public Use
  Company Number: US-B.I. PHARMACEUTICALS,INC./RIDGEFIELD-2013-BI-10055BP

PATIENT
  Sex: Male

DRUGS (6)
  1. MIRAPEX [Suspect]
     Indication: PARKINSON^S DISEASE
     Dosage: 4.5 MG
     Route: 048
  2. MIRAPEX [Suspect]
     Dosage: 9 MG
     Route: 048
  3. MIRAPEX [Suspect]
     Dosage: 0.75 MG
     Route: 048
  4. DIAZEPAM [Concomitant]
     Route: 065
  5. CYMBALTA [Concomitant]
     Route: 065
  6. TRAZODONE [Concomitant]
     Indication: SLEEP DISORDER
     Route: 065

REACTIONS (3)
  - Tremor [Unknown]
  - Drug ineffective [Unknown]
  - Restless legs syndrome [Not Recovered/Not Resolved]
